FAERS Safety Report 23082742 (Version 1)
Quarter: 2023Q4

REPORT INFORMATION
  Report Type: Spontaneous
  Country: BR (occurrence: BR)
  Receive Date: 20231019
  Receipt Date: 20231019
  Transmission Date: 20240110
  Serious: Yes (Death, Other)
  Sender: FDA-Public Use
  Company Number: BR-SA-2019SA265978

PATIENT
  Age: 14 Month
  Sex: Female
  Weight: 6.65 kg

DRUGS (12)
  1. ENOXAPARIN SODIUM [Suspect]
     Active Substance: ENOXAPARIN SODIUM
     Indication: Anticoagulation drug level
     Dosage: 5 MG, BID
     Route: 058
     Dates: start: 20190426
  2. PHYTONADIONE [Suspect]
     Active Substance: PHYTONADIONE
     Dosage: UNK, UNK
     Route: 065
  3. CAPTOPRIL [Concomitant]
     Active Substance: CAPTOPRIL
     Dosage: 2.5 MG, TID
  4. HYDROCHLOROTHIAZIDE [Concomitant]
     Active Substance: HYDROCHLOROTHIAZIDE
     Dosage: 6.5 MG, BID
  5. ASPIRIN [Concomitant]
     Active Substance: ASPIRIN
     Dosage: 30 MG, QD
  6. SPIRONOLACTONE [Concomitant]
     Active Substance: SPIRONOLACTONE
     Dosage: 10 MG, BID
  7. LACTULOSE [Concomitant]
     Active Substance: LACTULOSE
     Dosage: 6 ML, TID
  8. OMEPRAZOLE [Concomitant]
     Active Substance: OMEPRAZOLE
     Dosage: 0.6 ML, BID
  9. FUROSEMIDE [Concomitant]
     Active Substance: FUROSEMIDE
     Dosage: 4 MG, QID
  10. POTASSIUM CHLORIDE [Concomitant]
     Active Substance: POTASSIUM CHLORIDE
     Dosage: 2 ML, TID
  11. URSODIOL [Concomitant]
     Active Substance: URSODIOL
     Dosage: 60 MG, BID
  12. LEVETIRACETAM [Concomitant]
     Active Substance: LEVETIRACETAM
     Dosage: 90 MG, BID

REACTIONS (5)
  - Death [Fatal]
  - Haematochezia [Recovered/Resolved]
  - Factor Xa activity increased [Unknown]
  - Coagulation test abnormal [Not Recovered/Not Resolved]
  - Product use issue [Unknown]

NARRATIVE: CASE EVENT DATE: 20190508
